FAERS Safety Report 11091051 (Version 1)
Quarter: 2015Q2

REPORT INFORMATION
  Report Type: Spontaneous
  Country: US (occurrence: US)
  Receive Date: 20150505
  Receipt Date: 20150505
  Transmission Date: 20150821
  Serious: Yes (Congenital Anomaly)
  Sender: FDA-Public Use
  Company Number: US-ASTRAZENECA-2012BM10620

PATIENT
  Age: 0 Day
  Sex: Female

DRUGS (1)
  1. BYETTA [Suspect]
     Active Substance: EXENATIDE
     Route: 064

REACTIONS (1)
  - Dandy-Walker syndrome [Not Recovered/Not Resolved]

NARRATIVE: CASE EVENT DATE: 20110601
